FAERS Safety Report 21421428 (Version 1)
Quarter: 2022Q4

REPORT INFORMATION
  Report Type: Report from Study
  Country: EG (occurrence: EG)
  Receive Date: 20221007
  Receipt Date: 20221007
  Transmission Date: 20230113
  Serious: Yes (Other)
  Sender: FDA-Public Use
  Company Number: EG-BAYER-2022A136757

PATIENT
  Sex: Female

DRUGS (4)
  1. EYLEA [Suspect]
     Active Substance: AFLIBERCEPT
     Indication: Product used for unknown indication
     Dosage: UNK RIGHT EYE, SOLUTION FOR INJECTION
     Route: 031
     Dates: start: 20220316
  2. EYLEA [Suspect]
     Active Substance: AFLIBERCEPT
     Dosage: UNK RIGHT EYE, SOLUTION FOR INJECTION
     Route: 031
     Dates: start: 202207
  3. EYLEA [Suspect]
     Active Substance: AFLIBERCEPT
     Dosage: UNK, SOLUTION FOR INJECTION
     Route: 031
     Dates: start: 20220817
  4. JANUMET [Concomitant]
     Active Substance: METFORMIN HYDROCHLORIDE\SITAGLIPTIN PHOSPHATE
     Indication: Diabetes mellitus
     Dosage: UNK
     Dates: start: 2021

REACTIONS (1)
  - Vitrectomy [Unknown]

NARRATIVE: CASE EVENT DATE: 20220817
